FAERS Safety Report 5080785-4 (Version None)
Quarter: 2006Q3

REPORT INFORMATION
  Report Type: 
  Country: None (occurrence: None)
  Receive Date: 20060809
  Receipt Date: 20060727
  Transmission Date: 20061208
  Serious: Yes (Hospitalization, Disabling)
  Sender: FDA-Public Use
  Company Number: GXKR2006DK04460

PATIENT
  Age: 57 Year
  Sex: Male

DRUGS (1)
  1. APURIN (NGX) (ALLOPURINOL) TABLET [Suspect]
     Dosage: ORAL
     Route: 048

REACTIONS (3)
  - GAIT DISTURBANCE [None]
  - TENDON RUPTURE [None]
  - WOUND [None]
